FAERS Safety Report 5212172-X (Version None)
Quarter: 2007Q1

REPORT INFORMATION
  Report Type: 
  Country: None (occurrence: None)
  Receive Date: 20070118
  Receipt Date: 20070112
  Transmission Date: 20070707
  Serious: Yes (Other)
  Sender: FDA-Public Use
  Company Number: FR-BRISTOL-MYERS SQUIBB COMPANY-13608021

PATIENT
  Age: 45 Year
  Sex: Male
  Weight: 70 kg

DRUGS (3)
  1. BARACLUDE [Suspect]
     Indication: HEPATITIS B
     Route: 048
     Dates: start: 20061005, end: 20061124
  2. INTERFERON [Concomitant]
     Indication: HEPATITIS C
     Dates: end: 20061001
  3. RIBAVIRIN [Concomitant]
     Indication: HEPATITIS C
     Dates: end: 20061001

REACTIONS (3)
  - ALANINE AMINOTRANSFERASE INCREASED [None]
  - ASPARTATE AMINOTRANSFERASE INCREASED [None]
  - IMMUNE RECONSTITUTION SYNDROME [None]
